FAERS Safety Report 6221789-5 (Version None)
Quarter: 2009Q2

REPORT INFORMATION
  Report Type: 
  Country: None (occurrence: None)
  Receive Date: 20090608
  Receipt Date: 20090512
  Transmission Date: 20091009
  Serious: Yes (Other)
  Sender: FDA-Public Use
  Company Number: CIO09010739

PATIENT
  Age: 4 Year
  Sex: Female

DRUGS (3)
  1. ZOOTH ANTICAVITY TOOTHPASTE, PINK SPARKLE BUBBLEGUM FLAVOR (SODIUM FLU [Suspect]
     Dosage: 1 SPLASH, 1 ONLY FOR 1 DAY, OPTHALMIC
     Route: 047
     Dates: start: 20090512, end: 20090512
  2. ZOOTH POWER TOOTHBRUSH, VERSION UNKNOWN (NOT APPLICABLE) TOOTHBRUSH, 1 [Suspect]
     Dosage: 1 APPLIC, 1 ONLY FOR 1 DAY, OPTHALMIC
     Route: 047
     Dates: start: 20090512, end: 20090512
  3. ORAL-B STAGES ANTICAVITY TOOTHPASTE, PINK BUBBLEGUM FLAVOR (SODIUM FLU [Suspect]
     Dosage: OPTHALMIC
     Route: 047

REACTIONS (21)
  - ACCIDENTAL EXPOSURE [None]
  - CELLULITIS [None]
  - CORNEAL ABRASION [None]
  - CORNEAL PERFORATION [None]
  - ERYTHEMA [None]
  - EYE DISCHARGE [None]
  - EYE DISORDER [None]
  - EYE INFECTION [None]
  - EYE INJURY [None]
  - EYE IRRITATION [None]
  - EYE PAIN [None]
  - EYE SWELLING [None]
  - FOREIGN BODY IN EYE [None]
  - HYPERSENSITIVITY [None]
  - MEDICAL DEVICE COMPLICATION [None]
  - NIGHT SWEATS [None]
  - OCULAR HYPERAEMIA [None]
  - PAIN [None]
  - PERIORBITAL CELLULITIS [None]
  - PHOTOPHOBIA [None]
  - SWELLING FACE [None]
